FAERS Safety Report 9144179 (Version 2)
Quarter: 2013Q1

REPORT INFORMATION
  Report Type: Spontaneous
  Country: CN (occurrence: CN)
  Receive Date: 20130306
  Receipt Date: 20130313
  Transmission Date: 20140127
  Serious: Yes (Other)
  Sender: FDA-Public Use
  Company Number: CN-ASTRAZENECA-2013SE13391

PATIENT
  Age: 68 Year
  Sex: Male

DRUGS (3)
  1. PLENDIL [Suspect]
     Indication: HYPERTENSION
     Route: 048
     Dates: start: 201301, end: 20130121
  2. PLENDIL [Suspect]
     Indication: HYPERTENSION
     Route: 048
     Dates: start: 20130219
  3. ENALAPRIL MALEATE [Suspect]
     Route: 065

REACTIONS (4)
  - Haematemesis [Recovered/Resolved]
  - Saliva discolouration [Recovered/Resolved]
  - Headache [Recovered/Resolved]
  - Nausea [Recovered/Resolved]
